FAERS Safety Report 9783527 (Version 1)
Quarter: 2013Q4

REPORT INFORMATION
  Report Type: Spontaneous
  Country: US (occurrence: US)
  Receive Date: 20131226
  Receipt Date: 20131226
  Transmission Date: 20140711
  Serious: No
  Sender: FDA-Public Use
  Company Number: US-PFIZER INC-2013368795

PATIENT
  Age: 42 Year
  Sex: Female
  Weight: 74.83 kg

DRUGS (2)
  1. CHANTIX [Suspect]
     Indication: SMOKING CESSATION THERAPY
     Dosage: 0.5 MG, 1X/DAY
     Dates: start: 2012
  2. CHANTIX [Suspect]
     Dosage: UNK, 1X/DAY
     Dates: end: 2012

REACTIONS (2)
  - Anger [Recovered/Resolved]
  - Abnormal behaviour [Recovered/Resolved]
